FAERS Safety Report 5524547-X (Version None)
Quarter: 2007Q4

REPORT INFORMATION
  Report Type: 
  Country: None (occurrence: None)
  Receive Date: 20071123
  Receipt Date: 20071109
  Transmission Date: 20080405
  Serious: Yes (Life-Threatening, Hospitalization, Other)
  Sender: FDA-Public Use
  Company Number: US-RANBAXY-2007US-11402

PATIENT

DRUGS (2)
  1. VERAPAMIL [Suspect]
     Indication: HYPERTENSION
     Dosage: 240 MG, QD
     Route: 048
     Dates: end: 20070724
  2. ACEBUTOLOL BIOGALENIQUE 200MG COMPRIME PELLICULE [Interacting]
     Indication: ANGINA PECTORIS
     Dosage: 200 MG, BID
     Route: 048
     Dates: end: 20070724

REACTIONS (5)
  - BRADYCARDIA [None]
  - CARDIAC FAILURE [None]
  - DRUG INTERACTION [None]
  - HYPOTENSION [None]
  - SINUS ARRHYTHMIA [None]
